FAERS Safety Report 5809192-0 (Version None)
Quarter: 2008Q3

REPORT INFORMATION
  Report Type: 
  Country: None (occurrence: None)
  Receive Date: 20080714
  Receipt Date: 20080702
  Transmission Date: 20090109
  Serious: Yes (Other)
  Sender: FDA-Public Use
  Company Number: US-PFIZER INC-2008055602

PATIENT
  Sex: Male
  Weight: 81.2 kg

DRUGS (2)
  1. VIAGRA [Suspect]
     Indication: ERECTILE DYSFUNCTION
     Route: 048
     Dates: start: 20070724, end: 20080701
  2. LAMISIL [Suspect]
     Indication: TINEA PEDIS
     Dates: start: 20070904, end: 20071004

REACTIONS (6)
  - HEART RATE INCREASED [None]
  - HEART RATE IRREGULAR [None]
  - INSOMNIA [None]
  - PARAESTHESIA [None]
  - THYROID DISORDER [None]
  - TINEA PEDIS [None]
